FAERS Safety Report 19698138 (Version 1)
Quarter: 2021Q3

REPORT INFORMATION
  Report Type: Report from Study
  Country: US (occurrence: US)
  Receive Date: 20210813
  Receipt Date: 20210813
  Transmission Date: 20211014
  Serious: Yes (Hospitalization)
  Sender: FDA-Public Use
  Company Number: US-PFIZER INC-202100981082

PATIENT
  Age: 55 Year
  Sex: Male
  Weight: 72.3 kg

DRUGS (27)
  1. ETOPOSIDE. [Suspect]
     Active Substance: ETOPOSIDE
     Indication: ACUTE LYMPHOCYTIC LEUKAEMIA RECURRENT
     Dosage: 50 MG/M2/DAY, CYCLIC (DAYS 1?4 Q28 DAYS)
     Route: 042
     Dates: start: 20210703, end: 20210706
  2. CAFFEINE. [Concomitant]
     Active Substance: CAFFEINE
     Indication: HEADACHE
     Dosage: 100 MG, EVERY 4 HOURS AS NEEDED FOR UP TO 2 DAYS
     Route: 048
  3. ZOFRAN [Concomitant]
     Active Substance: ONDANSETRON HYDROCHLORIDE
     Dosage: 8 MG, EVERY 8 HOURS AS NEEDED
     Route: 048
  4. COMPAZINE [Concomitant]
     Active Substance: PROCHLORPERAZINE MALEATE
     Dosage: 10 MG, EVERY 6 HOURS PRN
     Route: 048
  5. SULFAMETHOXAZOLE/TRIMETHOPRIM [Concomitant]
     Active Substance: SULFAMETHOXAZOLE\TRIMETHOPRIM
     Dosage: 1 DF 2X/DAY ON MONDAY AND TUESDAY
     Route: 048
  6. DOXORUBICIN HCL [Suspect]
     Active Substance: DOXORUBICIN HYDROCHLORIDE
     Indication: ACUTE LYMPHOCYTIC LEUKAEMIA RECURRENT
     Dosage: 10 MG/M2/DAY, CYCLIC (DAYS 1?4 Q28 DAYS)
     Route: 042
     Dates: start: 20210703, end: 20210706
  7. VINCRISTINE SULFATE. [Suspect]
     Active Substance: VINCRISTINE SULFATE
     Indication: ACUTE LYMPHOCYTIC LEUKAEMIA RECURRENT
     Dosage: 0.4 MG/M2/DAY, CYCLIC (DAYS 1?4 Q28 DAYS)
     Route: 042
     Dates: start: 20210703, end: 20210706
  8. ZOVIRAX [Concomitant]
     Active Substance: ACYCLOVIR
     Dosage: 800 MG, 2X/DAY
     Route: 048
  9. CHOLECALCIFEROL [Concomitant]
     Active Substance: CHOLECALCIFEROL
     Dosage: 25 UG, DAILY
     Route: 048
  10. INOTUZUMAB OZOGAMICIN [Suspect]
     Active Substance: INOTUZUMAB OZOGAMICIN
     Dosage: 0.6 MG/M2, CYCLIC (DAYS 8 AND 15)
     Route: 042
     Dates: start: 20210616, end: 20210616
  11. DILAUDID [Concomitant]
     Active Substance: HYDROMORPHONE HYDROCHLORIDE
     Dosage: 2?4MG EVERY 4 HOURS AS NEEDED. MAX 6 PER DAY
     Route: 048
  12. PANTOPRAZOLE [Concomitant]
     Active Substance: PANTOPRAZOLE
     Dosage: 40 MG, 1X/DAY ON AN EMPTY STOMACH
     Route: 048
  13. INOTUZUMAB OZOGAMICIN [Suspect]
     Active Substance: INOTUZUMAB OZOGAMICIN
     Indication: ACUTE LYMPHOCYTIC LEUKAEMIA RECURRENT
     Dosage: 0.6 MG/M2, CYCLIC (DAYS 8 AND 15)
     Route: 042
     Dates: start: 20210609, end: 20210609
  14. DIFLUCAN [Concomitant]
     Active Substance: FLUCONAZOLE
     Dosage: 200 MG, DAILY
     Route: 048
  15. LOPERAMIDE [Concomitant]
     Active Substance: LOPERAMIDE
     Indication: DIARRHOEA
     Dosage: 2 CAPS (4 MG) FIRST SIGN DIARRHEA THEN 1 CAP EVERY 2?4 HRS OR AFTER EACH LOOSE STOOL. MAX 8/DAY
     Route: 048
  16. LORATADINE. [Concomitant]
     Active Substance: LORATADINE
     Dosage: 10 MG, 1X/DAY
     Route: 048
  17. MAG?OX [Concomitant]
     Active Substance: MAGNESIUM OXIDE
     Dosage: 800 MG, 2X/DAY
     Route: 048
  18. URSODIOL. [Concomitant]
     Active Substance: URSODIOL
     Dosage: 6 MG/KG, 2X/DAY, TAKE WITH FOOD
     Route: 048
  19. CYCLOPHOSPHAMIDE. [Suspect]
     Active Substance: CYCLOPHOSPHAMIDE
     Indication: ACUTE LYMPHOCYTIC LEUKAEMIA RECURRENT
     Dosage: 750 MG/M2, CYCLIC (DAY 5 Q28 DAYS)
     Route: 042
     Dates: start: 20210706, end: 20210706
  20. POTASSIUM CHLORIDE. [Concomitant]
     Active Substance: POTASSIUM CHLORIDE
     Dosage: 10 MEQ, 2X/DAY
     Route: 048
  21. PREDNISONE. [Suspect]
     Active Substance: PREDNISONE
     Indication: ACUTE LYMPHOCYTIC LEUKAEMIA RECURRENT
     Dosage: 60 MG/M2, 2X/DAY (DAYS 1?5 Q28 DAYS)
     Route: 048
     Dates: start: 20210703, end: 20210707
  22. TYLENOL [Concomitant]
     Active Substance: ACETAMINOPHEN
     Dosage: 1000 MG, 3 TIMES DAILY PRN
     Route: 048
  23. CALCIUM CARBONATE/VITAMIN D NOS [Concomitant]
     Dosage: [CALCIUM CARBONATE 600MG]/[VITAMIN D 400 UNIT], DAILY
     Route: 048
  24. CHLORHEXIDINE GLUCONATE. [Concomitant]
     Active Substance: CHLORHEXIDINE GLUCONATE
     Dosage: (SWISH AND SPIT 2X/DAY. RINSE 60 SEC, SPIT. AFTER RINSE DIP BRUSH/ BRUSH ALONG GUMLINE
  25. LOVAZA [Concomitant]
     Active Substance: OMEGA-3-ACID ETHYL ESTERS
     Dosage: 2 G, 2X/DAY
     Route: 048
  26. LEVAQUIN [Concomitant]
     Active Substance: LEVOFLOXACIN
     Dosage: 750 MG, EVERY 24 HOURS, TAKE AS INSTRUCTED WHEN ANC {500
     Route: 048
  27. SODIUM FLUORIDE. [Concomitant]
     Active Substance: SODIUM FLUORIDE
     Dosage: 1 APPLICATION DENTAL DAILY, SPIT. DO NOT EAT/DRINK/RINSE FOR 30 MIN AFTER

REACTIONS (2)
  - Pneumonia [Not Recovered/Not Resolved]
  - Hyponatraemia [Recovering/Resolving]

NARRATIVE: CASE EVENT DATE: 20210728
